FAERS Safety Report 7272549 (Version 3)
Quarter: 2014Q2

REPORT INFORMATION
  Report Type: Report from Study
  Country: JP (occurrence: JP)
  Receive Date: 20100205
  Receipt Date: 20140527
  Transmission Date: 20141212
  Serious: Yes (Death, Other)
  Sender: FDA-Public Use
  Company Number: PHHY2010JP05868

PATIENT
  Age: 80 Year
  Sex: Female

DRUGS (5)
  1. AMN107 [Suspect]
     Indication: CHRONIC MYELOID LEUKAEMIA
     Dosage: 800 MG, DAILY
     Route: 048
     Dates: start: 20091212, end: 20091231
  2. GLIVEC [Suspect]
     Dosage: 400 MG, PER DAY
  3. GLIVEC [Suspect]
     Dosage: 400 MG, PER DAY
  4. LASIX [Concomitant]
     Dosage: 20 MG, UNK
     Route: 048
  5. BAYASPIRIN [Concomitant]
     Dosage: 100 MG
     Route: 048

REACTIONS (7)
  - Chronic myeloid leukaemia [Fatal]
  - Ascites [Unknown]
  - Renal impairment [Unknown]
  - Pleural effusion [Unknown]
  - Blood creatine phosphokinase increased [Unknown]
  - Musculoskeletal pain [Unknown]
  - Dysphagia [Unknown]
